FAERS Safety Report 23267555 (Version 1)
Quarter: 2023Q4

REPORT INFORMATION
  Report Type: Spontaneous
  Country: US (occurrence: None)
  Receive Date: 20231205
  Receipt Date: 20231205
  Transmission Date: 20240110
  Serious: Yes (Other)
  Sender: FDA-Public Use
  Company Number: None

PATIENT
  Age: 66 Year
  Sex: Female
  Weight: 62.6 kg

DRUGS (5)
  1. ATOVAQUONE AND PROGUANIL HCL [Suspect]
     Active Substance: ATOVAQUONE\PROGUANIL HYDROCHLORIDE
     Indication: Malaria prophylaxis
     Dosage: FREQUENCY : DAILY;?
     Route: 048
     Dates: start: 2023, end: 20230910
  2. ESTRADIOL [Concomitant]
     Active Substance: ESTRADIOL
  3. PRANDIA [Concomitant]
  4. BIOTIN [Concomitant]
     Active Substance: BIOTIN
  5. ULTRA DRY EYE TG [Concomitant]

REACTIONS (7)
  - Cough [None]
  - Dyspepsia [None]
  - Mouth swelling [None]
  - Oral disorder [None]
  - Back pain [None]
  - Red blood cell count abnormal [None]
  - Eructation [None]

NARRATIVE: CASE EVENT DATE: 20230925
